FAERS Safety Report 5087646-5 (Version None)
Quarter: 2006Q3

REPORT INFORMATION
  Report Type: 
  Country: None (occurrence: None)
  Receive Date: 20060824
  Receipt Date: 20060613
  Transmission Date: 20061208
  Serious: Yes (Death, Life-Threatening)
  Sender: FDA-Public Use
  Company Number: PHBS2006JP08857

PATIENT
  Age: 47 Year
  Sex: Male

DRUGS (1)
  1. VOLTAREN [Suspect]
     Indication: ANTIPYRESIS
     Dosage: 50 MG/DAY
     Route: 054
     Dates: start: 20060428, end: 20060428

REACTIONS (15)
  - ALANINE AMINOTRANSFERASE INCREASED [None]
  - ASPARTATE AMINOTRANSFERASE INCREASED [None]
  - BLOOD CREATININE INCREASED [None]
  - BLOOD PH DECREASED [None]
  - BLOOD PRESSURE DECREASED [None]
  - BLOOD SODIUM DECREASED [None]
  - BLOOD UREA INCREASED [None]
  - C-REACTIVE PROTEIN INCREASED [None]
  - CONVULSION [None]
  - DEPRESSED LEVEL OF CONSCIOUSNESS [None]
  - KLEBSIELLA INFECTION [None]
  - MENINGITIS BACTERIAL [None]
  - PO2 INCREASED [None]
  - RENAL IMPAIRMENT [None]
  - SHOCK [None]
